FAERS Safety Report 8122220-5 (Version None)
Quarter: 2012Q1

REPORT INFORMATION
  Report Type: 
  Country: None (occurrence: None)
  Receive Date: 20120208
  Receipt Date: 20120201
  Transmission Date: 20120608
  Serious: Yes (Hospitalization, Other)
  Sender: FDA-Public Use
  Company Number: NZ-B.I. PHARMACEUTICALS,INC./RIDGEFIELD-2012-AU-00184AU

PATIENT
  Sex: Female

DRUGS (4)
  1. PRADAXA [Suspect]
     Indication: ATRIAL FIBRILLATION
     Dosage: 220 MG
     Dates: start: 20110701, end: 20120117
  2. CANDESARTAN CILEXETIL [Concomitant]
  3. DIGOXIN [Concomitant]
  4. FLUTICASONE PROPIONATE/SALMETEROL [Concomitant]

REACTIONS (7)
  - PNEUMONIA [None]
  - WEIGHT DECREASED [None]
  - HYPOTENSION [None]
  - BRONCHITIS [None]
  - HEADACHE [None]
  - DIARRHOEA [None]
  - ATRIAL FIBRILLATION [None]
